FAERS Safety Report 12387173 (Version 1)
Quarter: 2016Q2

REPORT INFORMATION
  Report Type: Report from Study
  Country: CA (occurrence: CA)
  Receive Date: 20160519
  Receipt Date: 20160519
  Transmission Date: 20160815
  Serious: Yes (Other)
  Sender: FDA-Public Use
  Company Number: CA-ABBVIE-16K-028-1566017-00

PATIENT
  Sex: Female

DRUGS (1)
  1. HUMIRA [Suspect]
     Active Substance: ADALIMUMAB
     Indication: CROHN^S DISEASE
     Route: 058
     Dates: start: 20110224, end: 20160406

REACTIONS (4)
  - Vaginal neoplasm [Not Recovered/Not Resolved]
  - Female genital tract fistula [Recovering/Resolving]
  - Diarrhoea [Not Recovered/Not Resolved]
  - Vaginal abscess [Not Recovered/Not Resolved]

NARRATIVE: CASE EVENT DATE: 2016
